FAERS Safety Report 8761348 (Version 1)
Quarter: 2012Q4

REPORT INFORMATION
  Report Type: 
  Country: GB (occurrence: GB)
  Receive Date: 20120830
  Receipt Date: 20120830
  Transmission Date: 20130627
  Serious: Yes (Hospitalization)
  Sender: FDA-Public Use
  Company Number: GB-PERRIGO-12GB007365

PATIENT
  Age: 52 Year
  Sex: Female

DRUGS (5)
  1. IBUPROFEN 16028/0013 200 MG [Suspect]
     Indication: BACK PAIN
     Dosage: UNK
     Route: 048
     Dates: end: 20120815
  2. IBUPROFEN 16028/0013 200 MG [Suspect]
     Indication: OSTEOARTHRITIS
  3. BETAMETHASONE SODIUM PHOSPHATE [Concomitant]
     Indication: MOUTH ULCERATION
     Dosage: 1 DF, prn
     Route: 048
  4. LISINOPRIL [Concomitant]
     Indication: PRODUCT USED FOR UNKNOWN INDICATION
     Dosage: UNK
     Route: 065
  5. PARACETAMOL [Concomitant]
     Indication: PRODUCT USED FOR UNKNOWN INDICATION
     Dosage: UNK
     Route: 065

REACTIONS (2)
  - Duodenal ulcer perforation [Not Recovered/Not Resolved]
  - Abdominal pain [Unknown]
